FAERS Safety Report 10789741 (Version 2)
Quarter: 2015Q1

REPORT INFORMATION
  Report Type: Spontaneous
  Country: GB (occurrence: GB)
  Receive Date: 20150212
  Receipt Date: 20150225
  Transmission Date: 20150721
  Serious: Yes (Death, Life-Threatening, Hospitalization)
  Sender: FDA-Public Use
  Company Number: GB-SA-2015SA015981

PATIENT
  Age: 85 Year
  Sex: Male

DRUGS (11)
  1. CLOPIDOGREL BISULFATE. [Suspect]
     Active Substance: CLOPIDOGREL BISULFATE
     Indication: CHEST PAIN
     Dosage: 600MG LOADING DOSE FOLLOWED BY 2 DAYS AT 75MG.
     Route: 065
     Dates: start: 20141217, end: 20141217
  2. BISOPROLOL FUMARATE. [Concomitant]
     Active Substance: BISOPROLOL FUMARATE
  3. LOSARTAN [Concomitant]
     Active Substance: LOSARTAN
  4. NICORANDIL [Concomitant]
     Active Substance: NICORANDIL
  5. OMEPRAZOLE. [Concomitant]
     Active Substance: OMEPRAZOLE
  6. AMLODIPINE [Concomitant]
     Active Substance: AMLODIPINE BESYLATE
  7. XARELTO [Interacting]
     Active Substance: RIVAROXABAN
     Indication: ATRIAL FIBRILLATION
     Route: 048
     Dates: start: 20141219, end: 20141221
  8. CLOPIDOGREL BISULFATE. [Interacting]
     Active Substance: CLOPIDOGREL BISULFATE
     Indication: CHEST PAIN
     Route: 065
     Dates: start: 20141218, end: 20141219
  9. ASPIRIN. [Concomitant]
     Active Substance: ASPIRIN
     Indication: CORONARY ARTERY DISEASE
     Dosage: LONG TERM
  10. ISOSORBIDE [Concomitant]
     Active Substance: ISOSORBIDE
  11. SIMVASTATIN. [Concomitant]
     Active Substance: SIMVASTATIN

REACTIONS (6)
  - Haematuria [Unknown]
  - Drug interaction [Unknown]
  - Haemorrhage intracranial [Unknown]
  - Atrial fibrillation [Unknown]
  - Gastrointestinal haemorrhage [Unknown]
  - Myocardial infarction [Fatal]

NARRATIVE: CASE EVENT DATE: 20141221
